FAERS Safety Report 14151795 (Version 1)
Quarter: 2017Q4

REPORT INFORMATION
  Report Type: Spontaneous
  Country: US (occurrence: None)
  Receive Date: 20171101
  Receipt Date: 20171101
  Transmission Date: 20180321
  Serious: Yes (Hospitalization)
  Sender: FDA-Public Use
  Company Number: None

PATIENT
  Age: 59 Year
  Sex: Male

DRUGS (7)
  1. TRAXZODONE [Concomitant]
  2. NEXIUM [Concomitant]
     Active Substance: ESOMEPRAZOLE MAGNESIUM
  3. FENOFIBRATE. [Concomitant]
     Active Substance: FENOFIBRATE
  4. SILDENAFIL. [Concomitant]
     Active Substance: SILDENAFIL
  5. DONNATAL [Concomitant]
     Active Substance: ATROPINE SULFATE\HYOSCYAMINE SULFATE\PHENOBARBITAL\SCOPOLAMINE HYDROBROMIDE
  6. TESTOPEL [Suspect]
     Active Substance: TESTOSTERONE
     Indication: TESTICULAR FAILURE
     Dosage: 8 PELLETS EVERY 3-6 MONTHS IMPLANT
     Dates: start: 20150924
  7. XANAX [Concomitant]
     Active Substance: ALPRAZOLAM

REACTIONS (3)
  - Concussion [None]
  - Contusion [None]
  - Fall [None]

NARRATIVE: CASE EVENT DATE: 20171027
